FAERS Safety Report 5150101-8 (Version None)
Quarter: 2006Q4

REPORT INFORMATION
  Report Type: 
  Country: None (occurrence: None)
  Receive Date: 20061113
  Receipt Date: 20060905
  Transmission Date: 20070319
  Serious: Yes (Other)
  Sender: FDA-Public Use
  Company Number: ES-ABBOTT-06P-144-0343017-00

PATIENT
  Age: 63 Year
  Sex: Female

DRUGS (6)
  1. CLARITHROMYCIN [Suspect]
     Indication: PNEUMONIA
     Route: 042
  2. ANGIOTENSIN CONVERTING ENZYME INHIBITOR [Concomitant]
     Indication: HYPERTENSION
     Route: 065
  3. ACETAMINOPHEN [Concomitant]
     Indication: PYREXIA
     Route: 065
  4. ACETAMINOPHEN [Concomitant]
     Indication: CHILLS
  5. CEFTRIAXONE [Concomitant]
     Indication: PNEUMONIA
     Route: 042
  6. HEPARIN SODIUM [Concomitant]
     Indication: ATRIAL FIBRILLATION
     Route: 065

REACTIONS (2)
  - AGITATION [None]
  - DELIRIUM [None]
